FAERS Safety Report 7684787-0 (Version None)
Quarter: 2011Q3

REPORT INFORMATION
  Report Type: 
  Country: None (occurrence: None)
  Receive Date: 20110810
  Receipt Date: 20110729
  Transmission Date: 20111222
  Serious: Yes (Death, Hospitalization)
  Sender: FDA-Public Use
  Company Number: 2011MA010757

PATIENT
  Age: 97 Year
  Sex: Male

DRUGS (26)
  1. AZMACORT [Concomitant]
  2. DULCOLAX [Concomitant]
  3. FOSAMAX [Concomitant]
  4. DARIFENACIN [Concomitant]
  5. ALDACTONE [Concomitant]
  6. WARFARIN SODIUM [Concomitant]
  7. FERROUS SULFATE TAB [Concomitant]
  8. DIGOXIN [Suspect]
     Indication: HEART RATE IRREGULAR
     Dates: start: 20030515, end: 20060305
  9. PROSCAR [Concomitant]
  10. DITROPAN XL [Concomitant]
  11. ALUMINUM HYDROXIDE MAGNESIUM HYDROXIDE [Concomitant]
  12. ALBUTEROL SULFATE AUTOHALER [Concomitant]
  13. FUROSEMIDE [Concomitant]
  14. DIHYDROXYALUMINUM SODIUM CARBONATE [Concomitant]
  15. POTASSIUM [Concomitant]
  16. PENTOXIFYLLINE [Concomitant]
  17. HYDROCORTISONE [Concomitant]
  18. CARDIZEM [Concomitant]
  19. TYLENOL-500 [Concomitant]
  20. LEVOXYL [Concomitant]
  21. LOVENOX [Concomitant]
  22. HUMIBID [Concomitant]
  23. FLOMAX [Concomitant]
  24. COREG [Concomitant]
  25. OXYBUTYNIN [Concomitant]
  26. FLUOXETINE [Concomitant]

REACTIONS (33)
  - DILATATION ATRIAL [None]
  - PULMONARY ARTERIAL PRESSURE INCREASED [None]
  - CONDITION AGGRAVATED [None]
  - AORTIC VALVE STENOSIS [None]
  - CARDIOMEGALY [None]
  - HEPATIC CALCIFICATION [None]
  - SPLENIC CALCIFICATION [None]
  - CARDIO-RESPIRATORY ARREST [None]
  - VENTRICULAR HYPOKINESIA [None]
  - REFUSAL OF TREATMENT BY PATIENT [None]
  - ATRIAL FIBRILLATION [None]
  - ATRIAL PRESSURE INCREASED [None]
  - CARDIOACTIVE DRUG LEVEL DECREASED [None]
  - UPPER RESPIRATORY TRACT INFECTION [None]
  - NEPHROLITHIASIS [None]
  - ECONOMIC PROBLEM [None]
  - CARDIAC FAILURE CONGESTIVE [None]
  - LIVER FUNCTION TEST ABNORMAL [None]
  - OSTEITIS DEFORMANS [None]
  - BRADYCARDIA [None]
  - ABDOMINAL PAIN [None]
  - BLOOD ALKALINE PHOSPHATASE INCREASED [None]
  - LEFT VENTRICULAR HYPERTROPHY [None]
  - HAEMOPTYSIS [None]
  - ATELECTASIS [None]
  - MULTIPLE INJURIES [None]
  - DEMENTIA [None]
  - DEAFNESS [None]
  - HYPOPHAGIA [None]
  - MITRAL VALVE INCOMPETENCE [None]
  - TACHYCARDIA [None]
  - TRICUSPID VALVE INCOMPETENCE [None]
  - BUNDLE BRANCH BLOCK LEFT [None]
